FAERS Safety Report 7445345-6 (Version None)
Quarter: 2011Q2

REPORT INFORMATION
  Report Type: 
  Country: None (occurrence: None)
  Receive Date: 20110429
  Receipt Date: 20100406
  Transmission Date: 20111010
  Serious: No
  Sender: FDA-Public Use
  Company Number: A0853731A

PATIENT
  Age: 36 Year
  Sex: Female

DRUGS (1)
  1. ZOFRAN [Suspect]
     Indication: NAUSEA
     Dosage: 8MG SINGLE DOSE
     Route: 048
     Dates: start: 20100201, end: 20100201

REACTIONS (1)
  - HEADACHE [None]
